FAERS Safety Report 19800922 (Version 6)
Quarter: 2021Q4

REPORT INFORMATION
  Report Type: Report from Study
  Country: US (occurrence: US)
  Receive Date: 20210907
  Receipt Date: 20211230
  Transmission Date: 20220303
  Serious: Yes (Other)
  Sender: FDA-Public Use
  Company Number: US-NOVARTISPH-NVSC2021US200963

PATIENT
  Sex: Female

DRUGS (2)
  1. ENTRESTO [Suspect]
     Active Substance: SACUBITRIL\VALSARTAN
     Indication: Product used for unknown indication
     Dosage: UNK
     Route: 065
  2. ENTRESTO [Suspect]
     Active Substance: SACUBITRIL\VALSARTAN
     Route: 065

REACTIONS (9)
  - Pneumonia [Unknown]
  - Cough [Unknown]
  - Fluid retention [Unknown]
  - Lymphoedema [Unknown]
  - Joint swelling [Unknown]
  - Weight increased [Unknown]
  - Glycosylated haemoglobin decreased [Unknown]
  - Arthritis [Unknown]
  - Throat clearing [Unknown]
